FAERS Safety Report 8381794-X (Version None)
Quarter: 2012Q2

REPORT INFORMATION
  Report Type: 
  Country: None (occurrence: None)
  Receive Date: 20120522
  Receipt Date: 20120522
  Transmission Date: 20120825
  Serious: Yes (Other)
  Sender: FDA-Public Use
  Company Number: None

PATIENT
  Age: 71 Year
  Sex: Male
  Weight: 94.5 kg

DRUGS (1)
  1. DOCETAXEL [Suspect]
     Indication: PROSTATE CANCER METASTATIC
     Dosage: 150MG Q3 WEEKS IV INFUSION
     Route: 042
     Dates: start: 20120409

REACTIONS (5)
  - ERYTHEMA [None]
  - BLISTER [None]
  - OEDEMA PERIPHERAL [None]
  - INFUSION SITE EXTRAVASATION [None]
  - PAIN [None]
